FAERS Safety Report 19788663 (Version 1)
Quarter: 2021Q3

REPORT INFORMATION
  Report Type: Spontaneous
  Country: FR (occurrence: FR)
  Receive Date: 20210904
  Receipt Date: 20210904
  Transmission Date: 20211014
  Serious: Yes (Hospitalization, Other)
  Sender: FDA-Public Use
  Company Number: FR-SUN PHARMACEUTICAL INDUSTRIES LTD-2021RR-309891

PATIENT
  Age: 53 Year
  Sex: Male

DRUGS (3)
  1. BRILIQUE [Interacting]
     Active Substance: TICAGRELOR
     Indication: PROPHYLAXIS
     Dosage: 90 MILLIGRAM,1 DOSE EVERY 12 HOURS
     Route: 048
     Dates: start: 20210414
  2. MIANSERIN [Suspect]
     Active Substance: MIANSERIN
     Indication: PRODUCT USED FOR UNKNOWN INDICATION
     Dosage: UNK
     Route: 048
     Dates: end: 20210609
  3. ATORVASTATIN [Suspect]
     Active Substance: ATORVASTATIN
     Indication: HYPERCHOLESTEROLAEMIA
     Dosage: 80 MILLIGRAM, DAILY
     Route: 048
     Dates: start: 20210414, end: 20210609

REACTIONS (2)
  - Hepatic cytolysis [Recovering/Resolving]
  - Rhabdomyolysis [Recovering/Resolving]

NARRATIVE: CASE EVENT DATE: 20210609
